FAERS Safety Report 15757437 (Version 1)
Quarter: 2018Q4

REPORT INFORMATION
  Report Type: Spontaneous
  Country: JP (occurrence: JP)
  Receive Date: 20181224
  Receipt Date: 20181224
  Transmission Date: 20190205
  Serious: Yes (Death, Other)
  Sender: FDA-Public Use
  Company Number: JP-009507513-1812JPN002827J

PATIENT
  Age: 68 Year
  Sex: Male

DRUGS (14)
  1. CARBENIN [Concomitant]
     Active Substance: BETAMIPRON\PANIPENEM
  2. FLUDARA [Concomitant]
     Active Substance: FLUDARABINE PHOSPHATE
  3. CANCIDAS [Concomitant]
     Active Substance: CASPOFUNGIN ACETATE
  4. FLUCONAZOLE. [Concomitant]
     Active Substance: FLUCONAZOLE
  5. ALKERAN [Concomitant]
     Active Substance: MELPHALAN
  6. CANCIDAS [Suspect]
     Active Substance: CASPOFUNGIN ACETATE
     Dosage: UNK
     Route: 041
  7. MICAFUNGIN SODIUM [Concomitant]
     Active Substance: MICAFUNGIN SODIUM
     Dosage: UNK
     Route: 051
  8. TACROLIMUS HYDRATE [Concomitant]
     Active Substance: TACROLIMUS
     Dosage: UNK
     Route: 051
  9. VANCOMYCIN PREPARATIONS [Concomitant]
  10. AMBISOME [Concomitant]
     Active Substance: AMPHOTERICIN B
     Dosage: UNK
     Route: 042
  11. MEROPENEM. [Concomitant]
     Active Substance: MEROPENEM
     Dosage: UNK
     Route: 042
  12. METHOTREXATE. [Concomitant]
     Active Substance: METHOTREXATE
     Dosage: UNK
     Route: 042
  13. ITRACONAZOLE. [Concomitant]
     Active Substance: ITRACONAZOLE
  14. PREDNISOLONE. [Concomitant]
     Active Substance: PREDNISOLONE

REACTIONS (5)
  - Haemophagocytic lymphohistiocytosis [Fatal]
  - Renal failure [Fatal]
  - Hepatic failure [Fatal]
  - Infection [Fatal]
  - Respiratory failure [Fatal]
